FAERS Safety Report 6271211-8 (Version None)
Quarter: 2009Q3

REPORT INFORMATION
  Report Type: 
  Country: None (occurrence: None)
  Receive Date: 20090717
  Receipt Date: 20090713
  Transmission Date: 20100115
  Serious: Yes (Hospitalization, Congenital Anomaly, Other)
  Sender: FDA-Public Use
  Company Number: US-TEVA-201856USA

PATIENT
  Sex: Female

DRUGS (1)
  1. NORTRIPTYLINE HYDROCHLORIDE [Suspect]
     Route: 064

REACTIONS (2)
  - CRANIOSYNOSTOSIS [None]
  - DRUG EXPOSURE DURING PREGNANCY [None]
